FAERS Safety Report 6438659-X (Version None)
Quarter: 2009Q4

REPORT INFORMATION
  Report Type: 
  Country: None (occurrence: None)
  Receive Date: 20091110
  Receipt Date: 20091026
  Transmission Date: 20100525
  Serious: Yes (Hospitalization)
  Sender: FDA-Public Use
  Company Number: 2009AC000328

PATIENT
  Age: 66 Year
  Sex: Male

DRUGS (15)
  1. DIGOXIN [Suspect]
     Dosage: 0.25 MG; PO
     Route: 048
     Dates: start: 20071116
  2. UROZATROL [Concomitant]
  3. THERALITH XR [Concomitant]
  4. LISINOPRIL [Concomitant]
  5. HYDRALAZINE HCL [Concomitant]
  6. INDAPAMIDE [Concomitant]
  7. ASPIRIN [Concomitant]
  8. NOVOLIN INSULIN [Concomitant]
  9. METFORMIN HCL [Concomitant]
  10. LIPITOR [Concomitant]
  11. PREVACID [Concomitant]
  12. LOVAZA [Concomitant]
  13. MULTI-VITAMIN [Concomitant]
  14. DOXYCYCLINE [Concomitant]
  15. ASPIRIN [Concomitant]

REACTIONS (24)
  - ABDOMINAL PAIN [None]
  - ABDOMINAL PAIN UPPER [None]
  - AORTIC STENOSIS [None]
  - ASTHENIA [None]
  - ATRIAL FIBRILLATION [None]
  - ATRIOVENTRICULAR BLOCK COMPLETE [None]
  - BRADYCARDIA [None]
  - CALCULUS URETERIC [None]
  - CARDIAC MURMUR [None]
  - CARDIOMEGALY [None]
  - DECREASED APPETITE [None]
  - DYSPNOEA [None]
  - DYSPNOEA EXERTIONAL [None]
  - GALLBLADDER POLYP [None]
  - HEART RATE DECREASED [None]
  - HYPERHIDROSIS [None]
  - HYPERTENSION [None]
  - NEPHROLITHIASIS [None]
  - NEUROPATHY PERIPHERAL [None]
  - NOCTURIA [None]
  - RETINOPATHY [None]
  - SICK SINUS SYNDROME [None]
  - THERAPEUTIC AGENT TOXICITY [None]
  - THYROID CYST [None]
